FAERS Safety Report 7283453-3 (Version None)
Quarter: 2011Q1

REPORT INFORMATION
  Report Type: 
  Country: None (occurrence: None)
  Receive Date: 20110125
  Receipt Date: 20110106
  Transmission Date: 20110831
  Serious: Yes (Hospitalization, Other)
  Sender: FDA-Public Use
  Company Number: 2010P1002145

PATIENT
  Age: 55 Year
  Sex: Female
  Weight: 108.1829 kg

DRUGS (17)
  1. PERCOCET (OXYCODONE AND ACETAMINOPHEN) 5/325 [Concomitant]
  2. PROTONIX [Concomitant]
  3. HYDROCHLOROTHIAZIDE [Suspect]
     Indication: HYPERTENSION
     Dosage: 25 MG; QD; PO
     Route: 048
     Dates: start: 20051215, end: 20060214
  4. FLEXERIL [Concomitant]
  5. LEVAQUIN [Concomitant]
  6. ALBUTEROL [Concomitant]
  7. NORCO (HYDROCODONE AND ACETAMINOPHEN) 5/325 OR 10/650 MG [Concomitant]
  8. PREDNISONE [Concomitant]
  9. ZITHROMAX (AZITHROMYCIN) 250 MG [Concomitant]
  10. CLONIDINE HYDROCHLORIDE 0.1 MG [Concomitant]
  11. CARBAMAZEPINE [Suspect]
     Indication: TRIGEMINAL NEURALGIA
     Dosage: 100-200 MG; BID; PO, 200 MG; TID; PO, 200-250 MG; QD; PO, ; X1-2; PO
     Route: 048
     Dates: start: 20060104, end: 20060125
  12. CARBAMAZEPINE [Suspect]
     Indication: TRIGEMINAL NEURALGIA
     Dosage: 100-200 MG; BID; PO, 200 MG; TID; PO, 200-250 MG; QD; PO, ; X1-2; PO
     Route: 048
     Dates: start: 20060126, end: 20060129
  13. CARBAMAZEPINE [Suspect]
     Indication: TRIGEMINAL NEURALGIA
     Dosage: 100-200 MG; BID; PO, 200 MG; TID; PO, 200-250 MG; QD; PO, ; X1-2; PO
     Route: 048
     Dates: start: 20060201, end: 20060201
  14. CARBAMAZEPINE [Suspect]
     Indication: TRIGEMINAL NEURALGIA
     Dosage: 100-200 MG; BID; PO, 200 MG; TID; PO, 200-250 MG; QD; PO, ; X1-2; PO
     Route: 048
     Dates: start: 20060130, end: 20060214
  15. ELAVIL (AMITRIPTYLINE HCL) 25 MG [Concomitant]
  16. GUAIFENESIN AC LIQUID (CODEINE GUAIFENESIN) [Concomitant]
  17. DOXYCYCLINE [Concomitant]

REACTIONS (12)
  - SOMNOLENCE [None]
  - STEVENS-JOHNSON SYNDROME [None]
  - NAUSEA [None]
  - CHOLELITHIASIS [None]
  - LIP SWELLING [None]
  - PRODUCTIVE COUGH [None]
  - BRONCHITIS [None]
  - BACK PAIN [None]
  - PHARYNGEAL INFLAMMATION [None]
  - BLOOD GLUCOSE INCREASED [None]
  - PROTHROMBIN TIME PROLONGED [None]
  - DRUG ERUPTION [None]
